FAERS Safety Report 18634417 (Version 2)
Quarter: 2020Q4

REPORT INFORMATION
  Report Type: Spontaneous
  Country: US (occurrence: US)
  Receive Date: 20201218
  Receipt Date: 20201219
  Transmission Date: 20210114
  Serious: Yes (Other)
  Sender: FDA-Public Use
  Company Number: US-009507513-2002USA004184

PATIENT

DRUGS (1)
  1. TICE BCG [Suspect]
     Active Substance: BACILLUS CALMETTE-GUERIN SUBSTRAIN TICE LIVE ANTIGEN
     Dosage: CYCLICAL, FULL 6 DOSE COURSE
     Dates: end: 201905

REACTIONS (4)
  - Drug resistance [Unknown]
  - Asthenia [Unknown]
  - Mycobacterial infection [Unknown]
  - Central nervous system infection [Unknown]

NARRATIVE: CASE EVENT DATE: 201911
